FAERS Safety Report 4551443-7 (Version None)
Quarter: 2005Q1

REPORT INFORMATION
  Report Type: 
  Country: None (occurrence: None)
  Receive Date: 20050110
  Receipt Date: 20050104
  Transmission Date: 20050727
  Serious: Yes (Death)
  Sender: FDA-Public Use
  Company Number: GBWYE313805JAN05

PATIENT
  Sex: Male

DRUGS (5)
  1. DIAMOX [Suspect]
     Indication: PROPHYLAXIS
     Dosage: 250 MG 1X PER 1 TOT ORAL
     Route: 048
     Dates: start: 20041116, end: 20041116
  2. COMBIVENT [Concomitant]
  3. ENALAPRIL (ENALAPRIL) [Concomitant]
  4. FUROSEMIDE [Concomitant]
  5. SERETIDE (SALMETEROL/FLUTICASONE) [Concomitant]

REACTIONS (1)
  - MYOCARDIAL INFARCTION [None]
